FAERS Safety Report 4673281-7 (Version None)
Quarter: 2005Q2

REPORT INFORMATION
  Report Type: 
  Country: None (occurrence: None)
  Receive Date: 20050524
  Receipt Date: 20050524
  Transmission Date: 20051028
  Serious: No
  Sender: FDA-Public Use
  Company Number: None

PATIENT
  Age: 55 Year
  Sex: Male
  Weight: 54.4316 kg

DRUGS (10)
  1. HEPARIN [Suspect]
     Indication: THROMBOSIS PROPHYLAXIS
     Dosage: 5000 U SC BID
     Route: 058
     Dates: start: 20050105, end: 20050106
  2. PROPRANOLOL [Concomitant]
  3. MAGNESIUM OXIDE [Concomitant]
  4. OMEPRAZOLE [Concomitant]
  5. PROCHLORPERAZINE [Concomitant]
  6. NYSTATIN [Concomitant]
  7. CALCIUM CARBONATE [Concomitant]
  8. ALBUTEROL [Concomitant]
  9. LACTULOSE [Concomitant]
  10. K-PHOS NEUTRAL TAB [Concomitant]

REACTIONS (1)
  - HEPARIN-INDUCED THROMBOCYTOPENIA [None]
